FAERS Safety Report 6791721-4 (Version None)
Quarter: 2010Q2

REPORT INFORMATION
  Report Type: 
  Country: None (occurrence: None)
  Receive Date: 20100624
  Receipt Date: 20080807
  Transmission Date: 20101027
  Serious: No
  Sender: FDA-Public Use
  Company Number: US-PFIZER INC-2008058632

PATIENT
  Sex: Male
  Weight: 72.57 kg

DRUGS (1)
  1. XALATAN [Suspect]
     Route: 047
     Dates: start: 20080204, end: 20080323

REACTIONS (5)
  - EYE DISORDER [None]
  - EYE PAIN [None]
  - EYE SWELLING [None]
  - LACRIMATION INCREASED [None]
  - VISION BLURRED [None]
